FAERS Safety Report 6676681-9 (Version None)
Quarter: 2010Q2

REPORT INFORMATION
  Report Type: 
  Country: None (occurrence: None)
  Receive Date: 20100412
  Receipt Date: 20100401
  Transmission Date: 20101027
  Serious: Yes (Hospitalization)
  Sender: FDA-Public Use
  Company Number: US-ROCHE-566160

PATIENT
  Sex: Female
  Weight: 94.5 kg

DRUGS (17)
  1. TOCILIZUMAB [Suspect]
     Indication: RHEUMATOID ARTHRITIS
     Dosage: TEMPORARILY INTERRUPTED, DATE OF LAST DOSE PRIOR TO ONSET WAS 23 APRIL 2008.
     Route: 042
     Dates: start: 20060719
  2. TOCILIZUMAB [Suspect]
     Dosage: DOSE BLINDED. THE PATIENT WAS PREVIOUSLY ENROLLED IN WA18063 STUDY
     Route: 042
     Dates: start: 20060201
  3. METHOTREXATE [Concomitant]
     Route: 048
     Dates: start: 20050215
  4. SINGULAIR [Concomitant]
     Dosage: FREQUENCY:DAILY.
     Dates: start: 19990101
  5. FOLIC ACID [Concomitant]
     Dosage: FREQUENCY:DAILY
     Dates: start: 20020227
  6. COMBIVENT [Concomitant]
     Dates: start: 19970101
  7. COMBIVENT [Concomitant]
     Dates: start: 19990101
  8. COREG [Concomitant]
     Dates: start: 20060628
  9. LISINOPRIL [Concomitant]
     Dosage: FREQUENCY:DAILY
     Dates: start: 20060426
  10. ZETIA [Concomitant]
     Dosage: FREQUENCY:DAILY
     Dates: start: 20060628
  11. LORAZEPAM [Concomitant]
     Dates: start: 20030101
  12. LOVASTATIN [Concomitant]
     Dosage: DOSAGE REGIMEN: 40 MG 2 QD
     Dates: start: 20061113
  13. ASPIRIN [Concomitant]
     Dosage: FREQUENCY:DAILY
     Dates: start: 20061113
  14. OMEPRAZOLE [Concomitant]
     Dosage: DOSAGE REGIME: 20 MG 2 QD
     Dates: start: 20070601
  15. KLOR-CON [Concomitant]
     Dates: start: 20070601
  16. LASIX [Concomitant]
     Dosage: DOSAGE REGIMEN: 40 MG 2 QD
     Dates: start: 20070201
  17. SPIRIVA [Concomitant]
     Dosage: DRUG: SPIORVA INHALER.TDD: 1 INH PRN
     Dates: start: 20071201

REACTIONS (2)
  - CHRONIC OBSTRUCTIVE PULMONARY DISEASE [None]
  - PNEUMONIA [None]
